FAERS Safety Report 13634583 (Version 1)
Quarter: 2017Q2

REPORT INFORMATION
  Report Type: Spontaneous
  Country: US (occurrence: US)
  Receive Date: 20170531
  Receipt Date: 20170531
  Transmission Date: 20170830
  Serious: No
  Sender: FDA-Public Use
  Company Number: US-ASTELLAS-1639663

PATIENT
  Age: 67 Year
  Sex: Female

DRUGS (1)
  1. TARCEVA [Suspect]
     Active Substance: ERLOTINIB HYDROCHLORIDE
     Indication: LUNG NEOPLASM MALIGNANT
     Dosage: 1 TABLET DAILY ON EMPTY STOMACH
     Route: 048
     Dates: start: 20131113

REACTIONS (7)
  - Blood pressure increased [Unknown]
  - Ageusia [Unknown]
  - Muscle spasms [Unknown]
  - Anosmia [Unknown]
  - Genital burning sensation [Unknown]
  - Pruritus genital [Unknown]
  - Tinnitus [Unknown]

NARRATIVE: CASE EVENT DATE: 20150727
